FAERS Safety Report 16383926 (Version 1)
Quarter: 2019Q2

REPORT INFORMATION
  Report Type: Spontaneous
  Country: US (occurrence: US)
  Receive Date: 20190426
  Receipt Date: 20190426
  Transmission Date: 20190711
  Serious: Yes (Hospitalization, Other)
  Sender: FDA-Public Use
  Company Number: None

PATIENT
  Age: 69 Year
  Sex: Female

DRUGS (10)
  1. LEVAQUIN [Suspect]
     Active Substance: LEVOFLOXACIN
     Indication: ESCHERICHIA INFECTION
     Dates: start: 20180930, end: 20181011
  2. ASPIRIN. [Concomitant]
     Active Substance: ASPIRIN
  3. ROCEPHIN [Suspect]
     Active Substance: CEFTRIAXONE SODIUM
     Indication: ESCHERICHIA INFECTION
     Route: 042
     Dates: start: 20180930, end: 20181011
  4. AMLODIPINE [Suspect]
     Active Substance: AMLODIPINE BESYLATE
     Dosage: ?          QUANTITY:10 MG MILLIGRAM(S);?
     Route: 048
     Dates: start: 20180930, end: 20181011
  5. LOSARTAN POTASSIUM. [Concomitant]
     Active Substance: LOSARTAN POTASSIUM
  6. TORSEMIDE. [Concomitant]
     Active Substance: TORSEMIDE
  7. GARLIC. [Concomitant]
     Active Substance: GARLIC
  8. CARVEDILOL. [Suspect]
     Active Substance: CARVEDILOL
     Indication: ESCHERICHIA INFECTION
     Dosage: ?          QUANTITY:6.25 MG MILLIGRAM(S);?
     Route: 048
     Dates: start: 20180930, end: 20181011
  9. VITAMIN D3 [Concomitant]
     Active Substance: CHOLECALCIFEROL
  10. TYLENOL [Concomitant]
     Active Substance: ACETAMINOPHEN

REACTIONS (22)
  - Cerebrovascular accident [None]
  - Asthenia [None]
  - Drug hypersensitivity [None]
  - Blood pressure decreased [None]
  - Weight increased [None]
  - Gait inability [None]
  - Peripheral swelling [None]
  - Diarrhoea [None]
  - Swelling face [None]
  - Dyspnoea [None]
  - Dysphonia [None]
  - Lymphoedema [None]
  - Back pain [None]
  - Pain in extremity [None]
  - Dysphagia [None]
  - Eye pruritus [None]
  - Fall [None]
  - Headache [None]
  - Thirst [None]
  - Blister [None]
  - Eye swelling [None]
  - Fatigue [None]

NARRATIVE: CASE EVENT DATE: 20180930
